FAERS Safety Report 18054948 (Version 1)
Quarter: 2020Q3

REPORT INFORMATION
  Report Type: Spontaneous
  Country: FR (occurrence: FR)
  Receive Date: 20200722
  Receipt Date: 20200722
  Transmission Date: 20201103
  Serious: Yes (Hospitalization)
  Sender: FDA-Public Use
  Company Number: NVSC2020FR199858

PATIENT
  Age: 34 Year
  Sex: Female

DRUGS (3)
  1. CYTARABINE SANDOZ 100 MG/ML, SOLUTION INJECTABLE [Suspect]
     Active Substance: CYTARABINE
     Indication: CHRONIC MYELOID LEUKAEMIA
     Dosage: 308 MG, QD
     Route: 042
     Dates: start: 20200417, end: 20200423
  2. ZAVEDOS [Suspect]
     Active Substance: IDARUBICIN
     Indication: CHRONIC MYELOID LEUKAEMIA
     Dosage: 13.9 MG, QD
     Route: 042
     Dates: start: 20200417, end: 20200423
  3. RYDAPT [Suspect]
     Active Substance: MIDOSTAURIN
     Indication: CHRONIC MYELOID LEUKAEMIA
     Dosage: 100 MG, QD (CAPSULE MOLLE)
     Route: 048
     Dates: start: 20200424, end: 20200618

REACTIONS (1)
  - Colitis ischaemic [Not Recovered/Not Resolved]

NARRATIVE: CASE EVENT DATE: 20200428
